FAERS Safety Report 8848341 (Version 1)
Quarter: 2012Q4

REPORT INFORMATION
  Report Type: 
  Country: US (occurrence: US)
  Receive Date: 20121019
  Receipt Date: 20121019
  Transmission Date: 20130627
  Serious: Yes (Other)
  Sender: FDA-Public Use
  Company Number: US-PAR PHARMACEUTICAL, INC-2012SCPR004664

PATIENT

DRUGS (6)
  1. FLUOXETINE [Suspect]
     Indication: DEPRESSION
     Dosage: 20 mg, Unknown
     Route: 065
  2. FLUOXETINE [Suspect]
     Indication: ANXIETY
     Dosage: 50 mg, daily
     Route: 065
  3. FLUOXETINE [Suspect]
     Dosage: 60 mg, daily
     Route: 065
  4. FLUOXETINE [Suspect]
     Dosage: 20 mg, Unknown
     Route: 065
  5. TRAZODONE [Suspect]
     Indication: TERMINAL INSOMNIA
     Dosage: 50 mg, Unknown
     Route: 065
  6. CARBIDOPA AND LEVODOPA [Suspect]
     Indication: PARKINSON^S DISEASE
     Dosage: 25/100 , tid
     Route: 065

REACTIONS (2)
  - Tardive dyskinesia [Recovered/Resolved]
  - Dystonia [Recovered/Resolved]
